FAERS Safety Report 4532185-0 (Version None)
Quarter: 2004Q4

REPORT INFORMATION
  Report Type: 
  Country: None (occurrence: None)
  Receive Date: 20041217
  Receipt Date: 20041206
  Transmission Date: 20050328
  Serious: Yes (Hospitalization)
  Sender: FDA-Public Use
  Company Number: 2004107949

PATIENT
  Age: 94 Year
  Sex: Male
  Weight: 69 kg

DRUGS (12)
  1. SPIRONOLACTON (SPIRONOLACTONE) [Suspect]
     Indication: ILL-DEFINED DISORDER
     Dosage: 25 MG (50 MG, DAILY), ORAL
     Route: 048
     Dates: end: 20041004
  2. FUROSEMIDE [Suspect]
     Indication: ILL-DEFINED DISORDER
     Dosage: ORAL
     Route: 048
  3. DOXYCYCLINE [Suspect]
     Indication: ILL-DEFINED DISORDER
     Dosage: 200 MG (10 MG, BID), ORAL
     Route: 048
     Dates: start: 20040713, end: 20040714
  4. ACETYLSALICYLIC ACID SRT [Suspect]
     Indication: ILL-DEFINED DISORDER
     Dosage: 160 MG (160 MG, DAILY), ORAL
     Route: 048
  5. NAFTIDROFURYL (NAFTIDROFURYL) [Concomitant]
  6. DIGOXIN (DIGOXN) [Concomitant]
  7. NEOMYCIN SULFATE (NEOMYCIN SULFATE) [Concomitant]
  8. ROFECOXIB [Concomitant]
  9. TAMSULOSIN (TAMSULOSIN) [Concomitant]
  10. LORAZEPAM [Concomitant]
  11. ACETAMINOPHEN [Concomitant]
  12. DESLORATADINE (DESLORATIDINE) [Concomitant]

REACTIONS (10)
  - ASTHENIA [None]
  - DRY SKIN [None]
  - ECZEMA [None]
  - FALL [None]
  - HAEMATOMA [None]
  - OEDEMA PERIPHERAL [None]
  - PRURITUS [None]
  - SCRATCH [None]
  - SKIN DESQUAMATION [None]
  - SKIN ULCER [None]
